FAERS Safety Report 14048007 (Version 1)
Quarter: 2017Q4

REPORT INFORMATION
  Report Type: Spontaneous
  Country: US (occurrence: US)
  Receive Date: 20171005
  Receipt Date: 20171005
  Transmission Date: 20180321
  Serious: Yes (Disabling)
  Sender: FDA-Public Use
  Company Number: None

PATIENT
  Sex: Female
  Weight: 67.5 kg

DRUGS (15)
  1. PAROXITINE HCL [Concomitant]
  2. VAGINAL INSERT (ESTRADIOL) [Concomitant]
  3. ESTRACE [Concomitant]
     Active Substance: ESTRADIOL
  4. BENTYL [Concomitant]
     Active Substance: DICYCLOMINE HYDROCHLORIDE
  5. ALPHA LIPOIC ACID [Concomitant]
     Active Substance: .ALPHA.-LIPOIC ACID
  6. ROSUVASTATIN CALCIUM. [Suspect]
     Active Substance: ROSUVASTATIN CALCIUM
     Indication: BLOOD CHOLESTEROL INCREASED
     Dosage: ?          QUANTITY:30 TABLET(S);OTHER FREQUENCY:EVERY OTHER DAY;?
     Route: 048
  7. PRAVASTATIN. [Suspect]
     Active Substance: PRAVASTATIN
     Indication: BLOOD CHOLESTEROL INCREASED
     Route: 048
  8. FIBER POWDER [Concomitant]
  9. BIOTIN [Concomitant]
     Active Substance: BIOTIN
  10. CALTRATE WITH VITAMIN D [Concomitant]
     Active Substance: CALCIUM CARBONATE\CHOLECALCIFEROL
  11. CENTRUM SILVER MULTIVITAMIN [Concomitant]
  12. PROBIOTIC ALIGN [Concomitant]
  13. AREDS-2 WITHOUT ZINC [Concomitant]
  14. ATENOLOL. [Concomitant]
     Active Substance: ATENOLOL
  15. HYDROXYZINE [Concomitant]
     Active Substance: HYDROXYZINE HYDROCHLORIDE

REACTIONS (1)
  - Neuropathy peripheral [None]
